FAERS Safety Report 20321841 (Version 4)
Quarter: 2025Q4

REPORT INFORMATION
  Report Type: Report from Study
  Country: EU (occurrence: EU)
  Receive Date: 20220111
  Receipt Date: 20251202
  Transmission Date: 20260117
  Serious: Yes (Hospitalization)
  Sender: SERVIER
  Company Number: EU-SERVIER-S21014035

PATIENT

DRUGS (10)
  1. PEGASPARGASE [Suspect]
     Active Substance: PEGASPARGASE
     Indication: Acute lymphocytic leukaemia
     Dosage: 3317.3 IU, D15 AND D43
     Route: 042
     Dates: start: 20211108, end: 20211213
  2. CYCLOPHOSPHAMIDE [Suspect]
     Active Substance: CYCLOPHOSPHAMIDE
     Indication: Acute lymphocytic leukaemia
     Dosage: 1262 MG, D1 AND D29
     Route: 042
     Dates: start: 20211025, end: 20211129
  3. CYTARABINE [Suspect]
     Active Substance: CYTARABINE
     Indication: Acute lymphocytic leukaemia
     Dosage: 95 MG, D2 TO D5, D9 TO D12, D30 TO D33 AND D37 TO D41
     Route: 042
     Dates: start: 20211026, end: 20211210
  4. CYTARABINE [Suspect]
     Active Substance: CYTARABINE
     Dosage: 30 MG, D3 AND D31
     Route: 037
     Dates: start: 20211027, end: 20211201
  5. HYDROCORTISONE [Suspect]
     Active Substance: HYDROCORTISONE
     Indication: Acute lymphocytic leukaemia
     Dosage: 15 MG
     Route: 037
     Dates: start: 20211027, end: 20211027
  6. METHOTREXATE [Suspect]
     Active Substance: METHOTREXATE
     Indication: Acute lymphocytic leukaemia
     Dosage: 15 MG
     Route: 037
     Dates: start: 20211027, end: 20211027
  7. VINCRISTINE SULFATE [Suspect]
     Active Substance: VINCRISTINE SULFATE
     Indication: Acute lymphocytic leukaemia
     Dosage: 1.9 MG, D22
     Route: 042
     Dates: start: 20211108, end: 20211220
  8. MERCAPTOPURINE [Suspect]
     Active Substance: MERCAPTOPURINE
     Indication: Acute lymphocytic leukaemia
     Dosage: 78.5 MG
     Route: 048
     Dates: start: 20211025, end: 20211115
  9. CEFTRIAXONE [Suspect]
     Active Substance: CEFTRIAXONE
     Indication: Sepsis
     Dosage: 2000 MG
     Route: 048
     Dates: start: 20211231
  10. TAZOBACTAM [Suspect]
     Active Substance: TAZOBACTAM
     Indication: Sepsis
     Dosage: 300 MG/KG
     Route: 042
     Dates: start: 20211225, end: 20211231

REACTIONS (4)
  - Migraine [Recovered/Resolved]
  - Escherichia sepsis [Not Recovered/Not Resolved]
  - Toxic encephalopathy [Recovered/Resolved]
  - Depression [Recovered/Resolved]

NARRATIVE: CASE EVENT DATE: 20211122
